FAERS Safety Report 4664203-3 (Version None)
Quarter: 2005Q2

REPORT INFORMATION
  Report Type: 
  Country: None (occurrence: None)
  Receive Date: 20050511
  Receipt Date: 20050427
  Transmission Date: 20051028
  Serious: Yes (Hospitalization, Other)
  Sender: FDA-Public Use
  Company Number: 603457

PATIENT
  Age: 49 Year
  Sex: Male
  Weight: 82 kg

DRUGS (3)
  1. ANTIHEMOPHILIC FACTOR (HUMAN) [Suspect]
     Indication: FACTOR VIII DEFICIENCY
     Dosage: 6000 IU; QD; UNKNOWN
     Route: 065
     Dates: start: 20041019, end: 20050419
  2. ANTIHEMOPHILIC FACTOR (HUMAN) [Suspect]
  3. ANTIHEMOPHILIC FACTOR (HUMAN) [Suspect]

REACTIONS (2)
  - FACTOR VIII INHIBITION [None]
  - HAEMORRHAGE [None]
